FAERS Safety Report 7902145-8 (Version None)
Quarter: 2011Q4

REPORT INFORMATION
  Report Type: 
  Country: None (occurrence: None)
  Receive Date: 20111108
  Receipt Date: 20111107
  Transmission Date: 20120403
  Serious: Yes (Hospitalization)
  Sender: FDA-Public Use
  Company Number: US-TEVA-304965USA

PATIENT
  Sex: Male

DRUGS (4)
  1. AMPHETAMINE AND DEXTROAMPHETAMINE SALTS [Suspect]
     Dosage: 20 MILLIGRAM;
  2. HYDROCORTISONE [Concomitant]
  3. LEVOTHYROXINE SODIUM [Concomitant]
  4. DULOXETINE HYDROCHLORIDE [Concomitant]

REACTIONS (1)
  - ADRENOCORTICAL INSUFFICIENCY ACUTE [None]
